FAERS Safety Report 21269723 (Version 1)
Quarter: 2022Q3

REPORT INFORMATION
  Report Type: Spontaneous
  Country: US (occurrence: US)
  Receive Date: 20220830
  Receipt Date: 20220830
  Transmission Date: 20221027
  Serious: Yes (Other)
  Sender: FDA-Public Use
  Company Number: US-BRISTOL-MYERS SQUIBB COMPANY-2022-094785

PATIENT
  Age: 61 Year
  Sex: Male

DRUGS (14)
  1. SPRYCEL [Suspect]
     Active Substance: DASATINIB
     Indication: Acute lymphocytic leukaemia
     Route: 065
  2. ASPIRIN [Concomitant]
     Active Substance: ASPIRIN
  3. CALCITRIOL [Concomitant]
     Active Substance: CALCITRIOL
  4. TYLENOL [Concomitant]
     Active Substance: ACETAMINOPHEN
  5. ACYCLOVIR [Concomitant]
     Active Substance: ACYCLOVIR
  6. URSODIOL [Concomitant]
     Active Substance: URSODIOL
  7. TRAMADOL HCL [Concomitant]
     Active Substance: TRAMADOL HYDROCHLORIDE
  8. GABAPENTIN [Concomitant]
     Active Substance: GABAPENTIN
  9. FEXOFENADINE HCL AND PSEUDOEPHEDRINE HCL [Concomitant]
     Active Substance: FEXOFENADINE HYDROCHLORIDE\PSEUDOEPHEDRINE HYDROCHLORIDE
  10. OMEPRAZOLE [Concomitant]
     Active Substance: OMEPRAZOLE
  11. VITAMIN C [Concomitant]
     Active Substance: ASCORBIC ACID
  12. VITAMINS NOS [Concomitant]
     Active Substance: VITAMINS
     Dosage: MULTIVITAMIN ADULTS 50+
  13. SULFAMETHOXAZOLE\TRIMETHOPRIM [Concomitant]
     Active Substance: SULFAMETHOXAZOLE\TRIMETHOPRIM
  14. FOLIC ACID [Concomitant]
     Active Substance: FOLIC ACID

REACTIONS (1)
  - Drug ineffective [Unknown]
